FAERS Safety Report 6150468-8 (Version None)
Quarter: 2009Q2

REPORT INFORMATION
  Report Type: 
  Country: None (occurrence: None)
  Receive Date: 20090409
  Receipt Date: 20090331
  Transmission Date: 20091009
  Serious: Yes (Other)
  Sender: FDA-Public Use
  Company Number: JP-JNJFOC-20090302205

PATIENT
  Sex: Female

DRUGS (3)
  1. RISPERDAL [Suspect]
     Indication: DELIRIUM
     Route: 048
  2. RISPERDAL [Suspect]
     Indication: DEMENTIA WITH LEWY BODIES
     Route: 048
  3. MIANSERIN HYDROCHLORIDE [Concomitant]
     Indication: DELIRIUM
     Dosage: FOR 14 DAYS
     Route: 065

REACTIONS (2)
  - ABASIA [None]
  - RHABDOMYOLYSIS [None]
